FAERS Safety Report 15689153 (Version 1)
Quarter: 2018Q4

REPORT INFORMATION
  Report Type: Spontaneous
  Country: US (occurrence: US)
  Receive Date: 20181123
  Receipt Date: 20181123
  Transmission Date: 20190205
  Serious: No
  Sender: FDA-Public Use
  Company Number: None

PATIENT
  Age: 61 Year
  Sex: Male
  Weight: 112.95 kg

DRUGS (9)
  1. CLOPIDOGREL [Concomitant]
     Active Substance: CLOPIDOGREL BISULFATE
  2. ASPIRIN. [Concomitant]
     Active Substance: ASPIRIN
  3. ATORVASTATIN [Concomitant]
     Active Substance: ATORVASTATIN
  4. NORVASC [Concomitant]
     Active Substance: AMLODIPINE BESYLATE
  5. NITRO [Concomitant]
     Active Substance: NITROGLYCERIN
  6. FENOFIBRATE. [Suspect]
     Active Substance: FENOFIBRATE
     Indication: HYPERTRIGLYCERIDAEMIA
     Dosage: ?          QUANTITY:1 DF DOSAGE FORM;?
     Route: 048
  7. LISINOPRIL. [Concomitant]
     Active Substance: LISINOPRIL
  8. CARVEDILOL. [Concomitant]
     Active Substance: CARVEDILOL
  9. MULTIVITAMIN [Concomitant]
     Active Substance: VITAMINS

REACTIONS (10)
  - Dyspnoea [None]
  - Hypoaesthesia [None]
  - Fatigue [None]
  - Muscular weakness [None]
  - Asthenia [None]
  - Chest pain [None]
  - Haemoptysis [None]
  - Peripheral swelling [None]
  - Musculoskeletal pain [None]
  - Scrotal swelling [None]

NARRATIVE: CASE EVENT DATE: 20181122
